FAERS Safety Report 7927266-5 (Version None)
Quarter: 2011Q4

REPORT INFORMATION
  Report Type: 
  Country: None (occurrence: None)
  Receive Date: 20111116
  Receipt Date: 20111031
  Transmission Date: 20120403
  Serious: Yes (Other)
  Sender: FDA-Public Use
  Company Number: 2011AP002540

PATIENT
  Sex: Female

DRUGS (1)
  1. ALLOPURINOL [Suspect]
     Indication: NEPHROLITHIASIS
     Dosage: 300 MG;QD

REACTIONS (2)
  - MATERNAL EXPOSURE DURING PREGNANCY [None]
  - ABORTION SPONTANEOUS [None]
